FAERS Safety Report 26007731 (Version 2)
Quarter: 2025Q4

REPORT INFORMATION
  Report Type: Spontaneous
  Country: AR (occurrence: AR)
  Receive Date: 20251106
  Receipt Date: 20251118
  Transmission Date: 20260117
  Serious: Yes (Other)
  Sender: NOVARTIS
  Company Number: AR-002147023-NVSC2025AR169754

PATIENT
  Age: 41 Year
  Sex: Male
  Weight: 83 kg

DRUGS (2)
  1. CYCLOSPORINE [Suspect]
     Active Substance: CYCLOSPORINE
     Indication: Bone marrow failure
     Dosage: 100 MG, QD
     Route: 065
     Dates: start: 201711, end: 2018
  2. THYMOGLOBULIN [Suspect]
     Active Substance: LAPINE T-LYMPHOCYTE IMMUNE GLOBULIN
     Indication: Bone marrow failure
     Dosage: UNK (FOR 5 DAYS)
     Route: 042
     Dates: start: 201712

REACTIONS (13)
  - Bicytopenia [Unknown]
  - Bone marrow failure [Unknown]
  - Myelodysplastic syndrome [Unknown]
  - White blood cell count decreased [Not Recovered/Not Resolved]
  - Platelet count decreased [Not Recovered/Not Resolved]
  - Haemoglobin decreased [Recovering/Resolving]
  - Anxiety [Unknown]
  - Laboratory test abnormal [Not Recovered/Not Resolved]
  - Off label use [Unknown]
  - Contusion [Unknown]
  - Petechiae [Unknown]
  - Marrow hyperplasia [Unknown]
  - Megakaryocytes [Unknown]

NARRATIVE: CASE EVENT DATE: 20251105
